FAERS Safety Report 10018205 (Version 1)
Quarter: 2014Q1

REPORT INFORMATION
  Report Type: Spontaneous
  Country: US (occurrence: None)
  Receive Date: 20140313
  Receipt Date: 20140313
  Transmission Date: 20141002
  Serious: Yes (Life-Threatening)
  Sender: FDA-Public Use
  Company Number: None

PATIENT
  Age: 65 Year
  Sex: Female
  Weight: 62.6 kg

DRUGS (4)
  1. ABILIFY [Suspect]
     Indication: DEPRESSION
     Route: 048
     Dates: start: 201208, end: 201308
  2. AMITRIFYLINE [Concomitant]
  3. LOSARTAN/HCTZ [Concomitant]
  4. THYROXINE [Concomitant]

REACTIONS (2)
  - Movement disorder [None]
  - Dysphonia [None]
